FAERS Safety Report 19843104 (Version 2)
Quarter: 2021Q4

REPORT INFORMATION
  Report Type: Report from Study
  Country: US (occurrence: US)
  Receive Date: 20210917
  Receipt Date: 20211228
  Transmission Date: 20220303
  Serious: No
  Sender: FDA-Public Use
  Company Number: US-ABBVIE-21K-163-4080814-00

PATIENT
  Sex: Female
  Weight: 47.216 kg

DRUGS (1)
  1. SYNTHROID [Suspect]
     Active Substance: LEVOTHYROXINE SODIUM
     Indication: Product used for unknown indication
     Route: 048
     Dates: start: 1996

REACTIONS (3)
  - Lung disorder [Unknown]
  - Weight decreased [Unknown]
  - Fatigue [Unknown]
